FAERS Safety Report 9529186 (Version 1)
Quarter: 2013Q3

REPORT INFORMATION
  Report Type: Not Available
  Country: US (occurrence: US)
  Receive Date: 20130916
  Receipt Date: 20130916
  Transmission Date: 20140515
  Serious: No
  Sender: FDA-Public Use
  Company Number: US-LUNDBECK-DKLU1089355

PATIENT
  Sex: Female

DRUGS (3)
  1. ONFI [Suspect]
     Indication: PRODUCT USED FOR UNKNOWN INDICATION
  2. ONFI [Suspect]
  3. ONFI [Suspect]

REACTIONS (3)
  - Clumsiness [Unknown]
  - Somnolence [Unknown]
  - Wrong technique in drug usage process [Unknown]
